FAERS Safety Report 17911458 (Version 1)
Quarter: 2020Q2

REPORT INFORMATION
  Report Type: Spontaneous
  Country: US (occurrence: US)
  Receive Date: 20200617
  Receipt Date: 20200617
  Transmission Date: 20200714
  Serious: No
  Sender: FDA-Public Use
  Company Number: None

PATIENT
  Age: 84 Year
  Sex: Male

DRUGS (1)
  1. AMBRISENTAN 5MG TABLETS 30/BO: 5MG [Suspect]
     Active Substance: AMBRISENTAN
     Indication: CARDIAC SEPTAL DEFECT
     Route: 048
     Dates: start: 20200604, end: 20200608

REACTIONS (4)
  - Swelling face [None]
  - Nasal congestion [None]
  - Oedema peripheral [None]
  - Eye swelling [None]

NARRATIVE: CASE EVENT DATE: 20200108
